FAERS Safety Report 18125540 (Version 1)
Quarter: 2020Q3

REPORT INFORMATION
  Report Type: Spontaneous
  Country: US (occurrence: US)
  Receive Date: 20200807
  Receipt Date: 20200807
  Transmission Date: 20201103
  Serious: No
  Sender: FDA-Public Use
  Company Number: US-ROCHE-2540337

PATIENT
  Sex: Female
  Weight: 108.96 kg

DRUGS (6)
  1. MIRALAX [Concomitant]
     Active Substance: POLYETHYLENE GLYCOL 3350
     Route: 048
     Dates: start: 20190116
  2. HYDROMORPHONE [Concomitant]
     Active Substance: HYDROMORPHONE
     Dates: start: 20190116
  3. ZOFRAN [Concomitant]
     Active Substance: ONDANSETRON HYDROCHLORIDE
     Route: 048
     Dates: start: 20190116
  4. PERJETA [Suspect]
     Active Substance: PERTUZUMAB
     Indication: NEOPLASM MALIGNANT
     Dosage: ONGOING: YES, ADMINISTER 420MG INTRAVENOUSLY
     Route: 048
     Dates: start: 20161102
  5. MORPHINE SULFATE. [Concomitant]
     Active Substance: MORPHINE SULFATE
     Route: 048
     Dates: start: 20190116
  6. AMLODIPINE [Concomitant]
     Active Substance: AMLODIPINE BESYLATE
     Route: 048
     Dates: start: 20190116

REACTIONS (1)
  - Illness [Unknown]
